FAERS Safety Report 10969865 (Version 1)
Quarter: 2015Q1

REPORT INFORMATION
  Report Type: Spontaneous
  Country: US (occurrence: None)
  Receive Date: 20150330
  Receipt Date: 20150330
  Transmission Date: 20150721
  Serious: Yes (Other)
  Sender: FDA-Public Use
  Company Number: None

PATIENT
  Age: 46 Year
  Sex: Female
  Weight: 74.84 kg

DRUGS (16)
  1. HIPREXX [Concomitant]
  2. CELEBREX [Concomitant]
     Active Substance: CELECOXIB
  3. COENZYME Q-10 [Concomitant]
  4. FIBER WELL (SOLUBLE FIBER) [Concomitant]
  5. LEVOTHROID [Concomitant]
     Active Substance: LEVOTHYROXINE SODIUM
  6. VITAMIN D [Concomitant]
     Active Substance: CHOLECALCIFEROL
  7. LYSINE [Concomitant]
     Active Substance: LYSINE
  8. MAGNESIUM [Concomitant]
     Active Substance: MAGNESIUM
  9. FISH OIL [Concomitant]
     Active Substance: FISH OIL
  10. BELVIQ [Concomitant]
     Active Substance: LORCASERIN HYDROCHLORIDE
  11. VICTOZA [Concomitant]
     Active Substance: LIRAGLUTIDE
  12. NORETHINDRONE. [Concomitant]
     Active Substance: NORETHINDRONE
  13. PREPARATION H NOS [Suspect]
     Active Substance: COCOA BUTTER\PETROLATUM\PHENYLEPHRINE HYDROCHLORIDE\PHENYLEPHRINE HYDROCHLORIDE OR MINERAL OIL
     Indication: HAEMORRHOIDS
     Route: 054
  14. VITAMIN B [Concomitant]
     Active Substance: VITAMIN B
  15. VITAMIN C [Concomitant]
     Active Substance: ASCORBIC ACID
  16. CALCIUM [Concomitant]
     Active Substance: CALCIUM

REACTIONS (4)
  - Painful defaecation [None]
  - Proctalgia [None]
  - Muscle spasms [None]
  - Frequent bowel movements [None]

NARRATIVE: CASE EVENT DATE: 20150327
